FAERS Safety Report 4877177-7 (Version None)
Quarter: 2005Q4

REPORT INFORMATION
  Report Type: 
  Country: None (occurrence: None)
  Receive Date: 20051206
  Receipt Date: 20051004
  Transmission Date: 20060501
  Serious: No
  Sender: FDA-Public Use
  Company Number: USA0510110030

PATIENT
  Sex: Male

DRUGS (3)
  1. CYMBALTA [Suspect]
     Indication: PAIN
     Dosage: 60 MG DAY
     Dates: start: 20050501
  2. LEXAPRO [Concomitant]
  3. NEURONTIN [Concomitant]

REACTIONS (2)
  - HYPERHIDROSIS [None]
  - TEMPERATURE INTOLERANCE [None]
